FAERS Safety Report 6960830-9 (Version None)
Quarter: 2010Q3

REPORT INFORMATION
  Report Type: 
  Country: None (occurrence: None)
  Receive Date: 20100901
  Receipt Date: 20100823
  Transmission Date: 20110219
  Serious: Yes (Other)
  Sender: FDA-Public Use
  Company Number: BR-ROCHE-723255

PATIENT
  Sex: Male
  Weight: 125 kg

DRUGS (6)
  1. TOCILIZUMAB [Suspect]
     Indication: RHEUMATOID ARTHRITIS
     Route: 042
     Dates: start: 20100121
  2. TOCILIZUMAB [Suspect]
     Route: 042
     Dates: start: 20100221
  3. TOCILIZUMAB [Suspect]
     Route: 042
     Dates: start: 20100321
  4. TOCILIZUMAB [Suspect]
     Dosage: TREATMENT INTERRUPTED DUE TO UNSPECIFIED REASONS.
     Route: 042
     Dates: start: 20100428
  5. PREDNISONE [Concomitant]
  6. DILBLOC [Concomitant]

REACTIONS (5)
  - DRUG INEFFECTIVE [None]
  - OSTEONECROSIS [None]
  - PAIN [None]
  - RED BLOOD CELL SEDIMENTATION RATE ABNORMAL [None]
  - WHITE BLOOD CELL COUNT INCREASED [None]
